FAERS Safety Report 8759574 (Version 1)
Quarter: 2012Q4

REPORT INFORMATION
  Report Type: 
  Country: IT (occurrence: IT)
  Receive Date: 20120829
  Receipt Date: 20120829
  Transmission Date: 20130627
  Serious: Yes (Other)
  Sender: FDA-Public Use
  Company Number: PHHY2012IT073895

PATIENT
  Age: 65 Year
  Sex: Female

DRUGS (6)
  1. OXALIPLATIN SANDOZ [Suspect]
     Indication: COLON CANCER
     Dosage: 110 mg, UNK
     Dates: start: 20120525, end: 20120723
  2. OXALIPLATIN SANDOZ [Suspect]
     Indication: RECTAL CANCER
  3. MAGNESIUM SULFATE [Concomitant]
  4. RANITIDINE [Concomitant]
  5. SOLDESAM [Concomitant]
  6. KYTRIL [Concomitant]

REACTIONS (4)
  - Bronchostenosis [Recovered/Resolved]
  - Bradycardia [Recovered/Resolved]
  - Tremor [Recovered/Resolved]
  - Hypotension [Recovered/Resolved]
